FAERS Safety Report 11199981 (Version 5)
Quarter: 2016Q1

REPORT INFORMATION
  Report Type: Other
  Country: NO (occurrence: NO)
  Receive Date: 20150618
  Receipt Date: 20160229
  Transmission Date: 20160525
  Serious: Yes (Death, Other)
  Sender: FDA-Public Use
  Company Number: NO-TAKEDA-2015TUS007871

PATIENT
  Age: 42 Year
  Sex: Male
  Weight: 72 kg

DRUGS (10)
  1. CYCLOSPORIN [Suspect]
     Active Substance: CYCLOSPORINE
     Indication: TRANSPLANT
  2. METHYLPREDNISOLONE. [Suspect]
     Active Substance: METHYLPREDNISOLONE
     Indication: GRAFT VERSUS HOST DISEASE IN SKIN
     Route: 065
  3. MYCOPHENOLATE MOFETIL. [Concomitant]
     Active Substance: MYCOPHENOLATE MOFETIL
  4. SOLU-MEDROL [Concomitant]
     Active Substance: METHYLPREDNISOLONE SODIUM SUCCINATE
  5. BACTRIM [Concomitant]
     Active Substance: SULFAMETHOXAZOLE\TRIMETHOPRIM
  6. ENTOCORT [Concomitant]
     Active Substance: BUDESONIDE
  7. CYCLOSPORIN [Suspect]
     Active Substance: CYCLOSPORINE
     Indication: IMMUNOSUPPRESSANT DRUG THERAPY
     Route: 048
  8. CYMEVENE                           /00784201/ [Concomitant]
     Active Substance: GANCICLOVIR
  9. POSACONAZOL [Concomitant]
     Active Substance: POSACONAZOLE
  10. ENTYVIO [Suspect]
     Active Substance: VEDOLIZUMAB
     Indication: GRAFT VERSUS HOST DISEASE IN GASTROINTESTINAL TRACT
     Dosage: 300 MG, UNK
     Route: 042
     Dates: start: 20150210

REACTIONS (4)
  - Opportunistic infection [Fatal]
  - Cytomegalovirus infection [Unknown]
  - Off label use [Unknown]
  - Graft versus host disease in skin [Unknown]

NARRATIVE: CASE EVENT DATE: 2015
